APPROVED DRUG PRODUCT: NAPROXEN
Active Ingredient: NAPROXEN
Strength: 375MG
Dosage Form/Route: TABLET;ORAL
Application: A074163 | Product #002
Applicant: WATSON LABORATORIES INC AN INDIRECT WHOLLY OWNED SUB OF TEVA PHARMACEUTICALS USA INC
Approved: Feb 10, 1995 | RLD: No | RS: No | Type: DISCN